FAERS Safety Report 5615822-9 (Version None)
Quarter: 2008Q1

REPORT INFORMATION
  Report Type: 
  Country: None (occurrence: None)
  Receive Date: 20080201
  Receipt Date: 20080122
  Transmission Date: 20080703
  Serious: Yes (Hospitalization)
  Sender: FDA-Public Use
  Company Number: 2008SP001819

PATIENT
  Age: 46 Year
  Sex: Male
  Weight: 107 kg

DRUGS (2)
  1. RIBAVIRIN [Suspect]
     Indication: HEPATITIS C
     Dosage: PO
     Route: 048
     Dates: end: 20070906
  2. PEGASYS [Suspect]
     Indication: HEPATITIS C
     Dosage: 180 MG; SC
     Route: 058
     Dates: end: 20070906

REACTIONS (10)
  - CLOSTRIDIAL INFECTION [None]
  - ENCEPHALOPATHY [None]
  - GASTROINTESTINAL INFECTION [None]
  - HAEMOGLOBIN DECREASED [None]
  - LIVER DISORDER [None]
  - PERITONITIS BACTERIAL [None]
  - PORTAL HYPERTENSION [None]
  - RENAL FAILURE [None]
  - URINARY TRACT INFECTION [None]
  - VARICES OESOPHAGEAL [None]
